FAERS Safety Report 17513341 (Version 2)
Quarter: 2020Q2

REPORT INFORMATION
  Report Type: Spontaneous
  Country: TW (occurrence: TW)
  Receive Date: 20200306
  Receipt Date: 20200504
  Transmission Date: 20200713
  Serious: Yes (Other)
  Sender: FDA-Public Use
  Company Number: TW-PFIZER INC-2020098861

PATIENT
  Age: 33 Year
  Sex: Male

DRUGS (1)
  1. BENEFIX [Suspect]
     Active Substance: COAGULATION FACTOR IX RECOMBINANT HUMAN\ISOPROPYL ALCOHOL
     Indication: FACTOR IX DEFICIENCY
     Dosage: 4000 IU, TWICE WEEKLY
     Route: 042

REACTIONS (4)
  - Pharyngeal inflammation [Recovering/Resolving]
  - Nerve compression [Recovering/Resolving]
  - Odynophagia [Recovering/Resolving]
  - Gastrooesophageal reflux disease [Recovering/Resolving]
